FAERS Safety Report 8026207-2 (Version None)
Quarter: 2012Q1

REPORT INFORMATION
  Report Type: 
  Country: None (occurrence: None)
  Receive Date: 20120105
  Receipt Date: 20110209
  Transmission Date: 20120608
  Serious: No
  Sender: FDA-Public Use
  Company Number: US-ABBOTT-11P-163-0704933-00

PATIENT
  Age: 47 Year
  Sex: Male
  Weight: 79.45 kg

DRUGS (5)
  1. SYNTHROID [Suspect]
     Indication: THYROID DISORDER
     Dates: start: 20090101, end: 20090101
  2. SYNTHROID [Suspect]
     Indication: THYROID DISORDER
     Dates: start: 20100101, end: 20110101
  3. VALIUM [Concomitant]
     Indication: MUSCLE SPASMS
  4. SYNTHROID [Suspect]
     Indication: THYROID DISORDER
     Dates: start: 20110101
  5. SYNTHROID [Suspect]
     Indication: THYROID DISORDER
     Dates: start: 20080101, end: 20090101

REACTIONS (2)
  - PAIN IN EXTREMITY [None]
  - ABASIA [None]
